FAERS Safety Report 16032439 (Version 1)
Quarter: 2019Q1

REPORT INFORMATION
  Report Type: Spontaneous
  Country: GB (occurrence: GB)
  Receive Date: 20190304
  Receipt Date: 20190304
  Transmission Date: 20190418
  Serious: Yes (Other)
  Sender: FDA-Public Use
  Company Number: PHHY2019GB046848

PATIENT
  Age: 42 Year
  Sex: Female
  Weight: 81.18 kg

DRUGS (2)
  1. MAXIDEX [Suspect]
     Active Substance: DEXAMETHASONE
     Indication: IRITIS
     Dosage: 1 GTT, QID (DECREASING DOSE STARTING WITH 1 DROP, 4 TIMES PER DAY )
     Route: 047
  2. MYDRILATE [Suspect]
     Active Substance: CYCLOPENTOLATE HYDROCHLORIDE
     Indication: IRITIS
     Dosage: 3 GTT, QD
     Route: 047
     Dates: start: 20190126, end: 20190207

REACTIONS (3)
  - Menstruation irregular [Unknown]
  - Nausea [Unknown]
  - Abdominal pain [Unknown]

NARRATIVE: CASE EVENT DATE: 20190130
